FAERS Safety Report 21410005 (Version 2)
Quarter: 2022Q4

REPORT INFORMATION
  Report Type: Spontaneous
  Country: US (occurrence: US)
  Receive Date: 20221005
  Receipt Date: 20221024
  Transmission Date: 20230113
  Serious: Yes (Hospitalization, Other)
  Sender: FDA-Public Use
  Company Number: US-009507513-2209USA010710

PATIENT
  Age: 51 Year
  Sex: Male
  Weight: 74 kg

DRUGS (5)
  1. KEYTRUDA [Suspect]
     Active Substance: PEMBROLIZUMAB
     Indication: Tonsil cancer
     Dosage: 200MG, EVERY 21 DAYS
     Route: 042
     Dates: start: 20210719
  2. LUNESTA [Concomitant]
     Active Substance: ESZOPICLONE
     Dosage: 1 MG AS NEEDED AT NIGHT
  3. ABILIFY [Concomitant]
     Active Substance: ARIPIPRAZOLE
     Dosage: 2 MILLIGRAM
  4. MIRTAZAPINE [Concomitant]
     Active Substance: MIRTAZAPINE
     Dosage: 30 MILLIGRAM, DAILY
  5. PRILOSEC [Concomitant]
     Active Substance: OMEPRAZOLE MAGNESIUM
     Dosage: 40 MILLIGRAM TWICE DAILY

REACTIONS (3)
  - Mediastinal operation [Not Recovered/Not Resolved]
  - Thymectomy [Not Recovered/Not Resolved]
  - Lung lobectomy [Not Recovered/Not Resolved]

NARRATIVE: CASE EVENT DATE: 20220927
